FAERS Safety Report 4296234-X (Version None)
Quarter: 2004Q1

REPORT INFORMATION
  Report Type: 
  Country: None (occurrence: None)
  Receive Date: 20040217
  Receipt Date: 20030923
  Transmission Date: 20041129
  Serious: No
  Sender: FDA-Public Use
  Company Number: US-GLAXOSMITHKLINE-A0427065A

PATIENT
  Age: 46 Year
  Sex: Female

DRUGS (4)
  1. LAMICTAL [Suspect]
     Indication: BIPOLAR DISORDER
     Dosage: 100MG PER DAY
     Route: 048
     Dates: start: 20020829
  2. ULTRAZYME [Concomitant]
  3. BEXTRA [Concomitant]
  4. FLONASE [Concomitant]

REACTIONS (2)
  - DIPLOPIA [None]
  - VISUAL DISTURBANCE [None]
